FAERS Safety Report 12950535 (Version 1)
Quarter: 2016Q4

REPORT INFORMATION
  Report Type: Spontaneous
  Country: US (occurrence: US)
  Receive Date: 20161117
  Receipt Date: 20161117
  Transmission Date: 20170207
  Serious: Yes (Life-Threatening)
  Sender: FDA-Public Use
  Company Number: None

PATIENT
  Age: 78 Year
  Sex: Male
  Weight: 99.1 kg

DRUGS (2)
  1. OMEPRAZOLE. [Suspect]
     Active Substance: OMEPRAZOLE
     Indication: GASTROOESOPHAGEAL REFLUX DISEASE
     Dosage: OMEPRAZOLE - 20 MG PO - FREQUENCY - AM
     Route: 048
     Dates: start: 20160915, end: 20161012
  2. OMEPRAZOLE. [Suspect]
     Active Substance: OMEPRAZOLE
     Indication: URINARY TRACT INFECTION
     Dosage: OMEPRAZOLE - 20 MG PO - FREQUENCY - AM
     Route: 048
     Dates: start: 20160915, end: 20161012

REACTIONS (3)
  - Angioedema [None]
  - Urinary tract infection [None]
  - Lip swelling [None]

NARRATIVE: CASE EVENT DATE: 20161012
